FAERS Safety Report 13903724 (Version 6)
Quarter: 2017Q4

REPORT INFORMATION
  Report Type: Report from Study
  Country: US (occurrence: US)
  Receive Date: 20170824
  Receipt Date: 20171227
  Transmission Date: 20180320
  Serious: Yes (Hospitalization)
  Sender: FDA-Public Use
  Company Number: US-ACTELION-A-NJ2017-158096

PATIENT
  Age: 55 Year
  Sex: Male
  Weight: 90.7 kg

DRUGS (5)
  1. VELETRI [Suspect]
     Active Substance: EPOPROSTENOL
     Indication: PULMONARY ARTERIAL HYPERTENSION
     Dosage: 13.15 NG/KG, PER MIN
     Route: 042
  2. XARELTO [Concomitant]
     Active Substance: RIVAROXABAN
  3. VELETRI [Suspect]
     Active Substance: EPOPROSTENOL
     Dosage: 12 NG/KG, PER MIN
     Route: 042
  4. ADCIRCA [Concomitant]
     Active Substance: TADALAFIL
  5. VELETRI [Suspect]
     Active Substance: EPOPROSTENOL
     Dosage: 10 NG/KG, PER MIN
     Route: 042

REACTIONS (18)
  - Blood potassium increased [Unknown]
  - Bruxism [Unknown]
  - Catheter site vesicles [Unknown]
  - Blood sodium decreased [Unknown]
  - Addison^s disease [Unknown]
  - Catheter site haemorrhage [Unknown]
  - Decreased appetite [Unknown]
  - Pain [Unknown]
  - Catheter site inflammation [Unknown]
  - Swelling face [Unknown]
  - Pain in extremity [Unknown]
  - Discomfort [Unknown]
  - Headache [Unknown]
  - Fatigue [Unknown]
  - Infection [Unknown]
  - Condition aggravated [Unknown]
  - Dyspnoea [Unknown]
  - Oedema [Unknown]

NARRATIVE: CASE EVENT DATE: 20170821
